FAERS Safety Report 8074083-4 (Version None)
Quarter: 2012Q1

REPORT INFORMATION
  Report Type: 
  Country: None (occurrence: None)
  Receive Date: 20120119
  Receipt Date: 20120110
  Transmission Date: 20120608
  Serious: Yes (Other)
  Sender: FDA-Public Use
  Company Number: DKLU1076096

PATIENT
  Sex: Female

DRUGS (1)
  1. ONFI [Suspect]
     Indication: PETIT MAL EPILEPSY
     Dosage: ORAL
     Route: 048

REACTIONS (3)
  - DRUG INEFFECTIVE [None]
  - ALCOHOL USE [None]
  - PETIT MAL EPILEPSY [None]
